FAERS Safety Report 5347733-0 (Version None)
Quarter: 2007Q2

REPORT INFORMATION
  Report Type: 
  Country: None (occurrence: None)
  Receive Date: 20070606
  Receipt Date: 20070525
  Transmission Date: 20071010
  Serious: Yes (Hospitalization)
  Sender: FDA-Public Use
  Company Number: HQWYE406429MAY07

PATIENT
  Sex: Male

DRUGS (4)
  1. PROTONIX [Suspect]
     Route: 048
     Dates: start: 20070522, end: 20070501
  2. DILANTIN [Interacting]
     Indication: CONVULSION
     Dosage: UNKNOWN
  3. GABAPENTIN [Concomitant]
     Indication: CONVULSION
  4. VITAMIN CAP [Concomitant]
     Indication: MEDICAL DIET
     Dosage: UNKNOWN

REACTIONS (2)
  - ANTICONVULSANT DRUG LEVEL DECREASED [None]
  - DRUG INTERACTION [None]
